FAERS Safety Report 8033155-0 (Version None)
Quarter: 2012Q1

REPORT INFORMATION
  Report Type: 
  Country: None (occurrence: None)
  Receive Date: 20120110
  Receipt Date: 20120110
  Transmission Date: 20120608
  Serious: Yes (Death)
  Sender: FDA-Public Use
  Company Number: None

PATIENT
  Age: 48 Year
  Sex: Female
  Weight: 98.429 kg

DRUGS (2)
  1. NITROGLYCERIN [Suspect]
     Indication: ANGINA PECTORIS
     Dosage: 0.4MG
     Route: 060
     Dates: start: 20111220, end: 20111220
  2. REVATIO [Concomitant]
     Indication: PULMONARY HYPERTENSION
     Dosage: 20MG
     Route: 048
     Dates: start: 20111001, end: 20111220

REACTIONS (9)
  - HYPOTENSION [None]
  - HYPOXIA [None]
  - AGITATION [None]
  - NAUSEA [None]
  - PYREXIA [None]
  - MENTAL IMPAIRMENT [None]
  - TACHYPNOEA [None]
  - GRUNTING [None]
  - CARDIAC ARREST [None]
